FAERS Safety Report 9717545 (Version 2)
Quarter: 2013Q4

REPORT INFORMATION
  Report Type: Spontaneous
  Country: US (occurrence: US)
  Receive Date: 20131127
  Receipt Date: 20131127
  Transmission Date: 20140711
  Serious: No
  Sender: FDA-Public Use
  Company Number: US-GILEAD-2009-0020542

PATIENT
  Sex: Female

DRUGS (9)
  1. LETAIRIS [Suspect]
     Indication: PULMONARY ARTERIAL HYPERTENSION
  2. LISINOPRIL [Concomitant]
     Indication: STAPHYLOCOCCAL INFECTION
  3. B COMPLEX [Concomitant]
  4. IODINE [Concomitant]
  5. OMEGA 3 [Concomitant]
  6. CALCIUM [Concomitant]
  7. COQ10 [Concomitant]
  8. ACTONEL [Concomitant]
  9. VITAMIN D [Concomitant]

REACTIONS (3)
  - Bronchitis [Recovered/Resolved]
  - Staphylococcal infection [Recovered/Resolved]
  - Acute sinusitis [Recovered/Resolved]
